FAERS Safety Report 7395885-3 (Version None)
Quarter: 2011Q2

REPORT INFORMATION
  Report Type: 
  Country: None (occurrence: None)
  Receive Date: 20110406
  Receipt Date: 20110329
  Transmission Date: 20111010
  Serious: Yes (Other)
  Sender: FDA-Public Use
  Company Number: US-BIOGENIDEC-2010BI025699

PATIENT
  Age: 37 Year
  Sex: Female

DRUGS (6)
  1. VITAMIN AND MINERAL PRENATAL SUPPLEMENT W/ FOLIC ACID CAP [Concomitant]
  2. ALBUTEROL [Concomitant]
  3. SYNTHROID [Concomitant]
  4. TYSABRI [Suspect]
     Indication: MULTIPLE SCLEROSIS
     Route: 042
     Dates: start: 20090617, end: 20100520
  5. DEXILANT [Concomitant]
  6. ADVAIR DISKUS 100/50 [Concomitant]

REACTIONS (1)
  - CAESAREAN SECTION [None]
